FAERS Safety Report 8948580 (Version 3)
Quarter: 2013Q1

REPORT INFORMATION
  Report Type: Spontaneous
  Country: GB (occurrence: GB)
  Receive Date: 20121206
  Receipt Date: 20130218
  Transmission Date: 20140127
  Serious: Yes (Other)
  Sender: FDA-Public Use
  Company Number: PHFR2012GB006236

PATIENT
  Age: 29 Year
  Sex: Male

DRUGS (4)
  1. CLOZARIL [Suspect]
     Indication: SCHIZOPHRENIA
     Dosage: 300 MG, UNK
     Route: 048
     Dates: start: 20120817
  2. CLOZARIL [Suspect]
     Dosage: 275 MG, UNK
     Route: 048
  3. CLOZARIL [Suspect]
     Dosage: 100 MG DAILY
     Route: 048
  4. CLOZARIL [Suspect]
     Dosage: 200 MG,
     Route: 048

REACTIONS (2)
  - Loss of consciousness [Recovered/Resolved]
  - Myoclonus [Recovered/Resolved]
